FAERS Safety Report 4647040-5 (Version None)
Quarter: 2005Q2

REPORT INFORMATION
  Report Type: 
  Country: None (occurrence: None)
  Receive Date: 20050331
  Receipt Date: 20050107
  Transmission Date: 20051028
  Serious: No
  Sender: FDA-Public Use
  Company Number: 04P-163-0263323-00

PATIENT
  Age: 62 Year
  Sex: Female
  Weight: 77.1115 kg

DRUGS (14)
  1. HUMIRA [Suspect]
     Indication: RHEUMATOID ARTHRITIS
     Dosage: 40 MG, 1 IN 2 WK, SUBCUTANEOUS
     Route: 058
     Dates: start: 20040603
  2. PREDNISONE TAB [Concomitant]
  3. ALENDRONATE SODIUM [Concomitant]
  4. LEFLUNOMIDE [Concomitant]
  5. IBUPROFEN [Concomitant]
  6. OESTRANORM [Concomitant]
  7. FISH OIL [Concomitant]
  8. LINSEED OIL [Concomitant]
  9. ASCORBIC ACID [Concomitant]
  10. HORMONES [Concomitant]
  11. TOCOPHEROL CONCENTRATE CAP [Concomitant]
  12. CALCIUM GLUCONATE [Concomitant]
  13. MOMETASONE FUROATE [Concomitant]
  14. VITAMINS [Concomitant]

REACTIONS (9)
  - BLOOD PRESSURE INCREASED [None]
  - COUGH [None]
  - INJECTION SITE ERYTHEMA [None]
  - INJECTION SITE IRRITATION [None]
  - INJECTION SITE NODULE [None]
  - INJECTION SITE PRURITUS [None]
  - PHARYNGOLARYNGEAL PAIN [None]
  - RASH ERYTHEMATOUS [None]
  - SUNBURN [None]
